FAERS Safety Report 4824359-6 (Version None)
Quarter: 2005Q4

REPORT INFORMATION
  Report Type: 
  Country: None (occurrence: None)
  Receive Date: 20051108
  Receipt Date: 20051028
  Transmission Date: 20060501
  Serious: Yes (Death, Other)
  Sender: FDA-Public Use
  Company Number: 2005149083

PATIENT
  Sex: Female

DRUGS (4)
  1. NORVASC [Suspect]
     Indication: ILL-DEFINED DISORDER
     Dosage: SEE IMAGE)
     Dates: start: 20040501, end: 20040731
  2. NORVASC [Suspect]
     Indication: ILL-DEFINED DISORDER
     Dosage: SEE IMAGE)
     Dates: start: 20040801, end: 20040817
  3. NORVASC [Suspect]
     Indication: ILL-DEFINED DISORDER
     Dosage: SEE IMAGE)
     Dates: start: 20040818, end: 20050129
  4. VASOTEC [Concomitant]

REACTIONS (5)
  - BLOOD PRESSURE FLUCTUATION [None]
  - DRUG DISPENSING ERROR [None]
  - DYSPHAGIA [None]
  - HAEMOGLOBIN DECREASED [None]
  - OEDEMA [None]
